FAERS Safety Report 9242555 (Version 1)
Quarter: 2013Q2

REPORT INFORMATION
  Report Type: Spontaneous
  Country: BR (occurrence: BR)
  Receive Date: 20130419
  Receipt Date: 20130419
  Transmission Date: 20140414
  Serious: Yes (Other)
  Sender: FDA-Public Use
  Company Number: PHHY2013BR037844

PATIENT
  Sex: Female

DRUGS (3)
  1. RITALINA [Suspect]
     Indication: DEPRESSION
     Dosage: UNK UKN, UNK
  2. RITALINA [Suspect]
     Indication: OFF LABEL USE
  3. STAVIGILE [Suspect]
     Dosage: UNK UKN, UNK

REACTIONS (1)
  - Parkinson^s disease [Unknown]
